FAERS Safety Report 4446874-X (Version None)
Quarter: 2004Q3

REPORT INFORMATION
  Report Type: 
  Country: None (occurrence: None)
  Receive Date: 20040908
  Receipt Date: 20040825
  Transmission Date: 20050211
  Serious: Yes (Hospitalization)
  Sender: FDA-Public Use
  Company Number: 2004222763JP

PATIENT
  Age: 10 Year
  Sex: Female
  Weight: 29.2 kg

DRUGS (1)
  1. GENOTROPIN [Suspect]
     Indication: HYPOPITUITARISM
     Dosage: 0.67 MG, QD, SUBCUTANEOUS
     Route: 058
     Dates: start: 19990804

REACTIONS (2)
  - FALL [None]
  - HUMERUS FRACTURE [None]
